FAERS Safety Report 4820879-9 (Version None)
Quarter: 2005Q4

REPORT INFORMATION
  Report Type: 
  Country: None (occurrence: None)
  Receive Date: 20051104
  Receipt Date: 20050519
  Transmission Date: 20060501
  Serious: Yes (Life-Threatening, Hospitalization, Other)
  Sender: FDA-Public Use
  Company Number: GB-NOVOPROD-245540

PATIENT
  Age: 19 Year
  Sex: Female
  Weight: 45 kg

DRUGS (9)
  1. LEVEMIR [Suspect]
     Indication: DIABETES MELLITUS INSULIN-DEPENDENT
     Dosage: 42 IU, QD
     Route: 058
     Dates: start: 20050304
  2. LEVEMIR [Suspect]
     Dosage: 50 IU, QD
     Route: 058
  3. NOVORAPID [Suspect]
     Indication: DIABETES MELLITUS INSULIN-DEPENDENT
     Dosage: 38 IU, QD
     Route: 058
     Dates: start: 20050304
  4. NOVORAPID [Suspect]
     Dosage: 28 IU, QD
     Route: 058
  5. RABEPRAZOLE SODIUM [Concomitant]
     Dosage: 20 MG, QD
     Route: 048
  6. METOCLOPRAMIDE [Concomitant]
     Dosage: 10 MG, BID
  7. ACETAMINOPHEN [Concomitant]
     Dosage: 1 G, UNK
  8. DICLOFENAC [Concomitant]
     Dosage: 50 MG, TID
  9. AMITRIPTYLINE HCL [Concomitant]
     Dosage: 10 MG, UNK
     Route: 048

REACTIONS (4)
  - ABDOMINAL PAIN [None]
  - BLINDNESS [None]
  - DIABETIC KETOACIDOSIS [None]
  - TREATMENT NONCOMPLIANCE [None]
